FAERS Safety Report 8044965-8 (Version None)
Quarter: 2012Q1

REPORT INFORMATION
  Report Type: 
  Country: None (occurrence: None)
  Receive Date: 20120113
  Receipt Date: 20120109
  Transmission Date: 20120608
  Serious: Yes (Other)
  Sender: FDA-Public Use
  Company Number: US-JNJFOC-20111208813

PATIENT
  Sex: Male
  Weight: 87.09 kg

DRUGS (4)
  1. FOLTX [Concomitant]
     Indication: PRODUCT USED FOR UNKNOWN INDICATION
     Route: 048
  2. REMICADE [Suspect]
     Indication: CROHN'S DISEASE
     Route: 042
     Dates: start: 20110601
  3. PENTASA [Concomitant]
     Indication: CROHN'S DISEASE
     Route: 048
  4. SIMCOR [Concomitant]
     Indication: BLOOD CHOLESTEROL
     Route: 048

REACTIONS (3)
  - VIRAL PERICARDITIS [None]
  - UNEVALUABLE EVENT [None]
  - CHEST PAIN [None]
